FAERS Safety Report 5075961-0 (Version None)
Quarter: 2006Q3

REPORT INFORMATION
  Report Type: 
  Country: None (occurrence: None)
  Receive Date: 20060714
  Receipt Date: 20060505
  Transmission Date: 20061208
  Serious: No
  Sender: FDA-Public Use
  Company Number: 2006SP001966

PATIENT
  Age: 59 Year
  Sex: Female
  Weight: 54.8852 kg

DRUGS (7)
  1. LUNESTA [Suspect]
     Indication: INSOMNIA
     Dosage: 2 MG;HS;ORAL
     Route: 048
     Dates: start: 20060503
  2. CYMBALTA [Concomitant]
  3. GLYBURIDE [Concomitant]
  4. NEURONTIN [Concomitant]
  5. LISINOPRIL [Concomitant]
  6. CRESTOR [Concomitant]
  7. AMBIEN [Concomitant]

REACTIONS (3)
  - HEADACHE [None]
  - INITIAL INSOMNIA [None]
  - NECK PAIN [None]
